FAERS Safety Report 18886605 (Version 2)
Quarter: 2021Q1

REPORT INFORMATION
  Report Type: Spontaneous
  Country: US (occurrence: US)
  Receive Date: 20210212
  Receipt Date: 20210309
  Transmission Date: 20210420
  Serious: No
  Sender: FDA-Public Use
  Company Number: US-AMGEN-USASP2021020262

PATIENT
  Age: 68 Year
  Sex: Female
  Weight: 72.25 kg

DRUGS (3)
  1. NEULASTA [Suspect]
     Active Substance: PEGFILGRASTIM
     Indication: PROPHYLAXIS
     Dosage: UNK, Q2WK
     Route: 058
     Dates: start: 202012
  2. DOXORUBICIN [Concomitant]
     Active Substance: DOXORUBICIN
     Indication: BREAST CANCER
     Dosage: 110 MILLIGRAM, Q2WK
     Dates: start: 202012, end: 20210215
  3. CYTOXAN [Concomitant]
     Active Substance: CYCLOPHOSPHAMIDE
     Indication: BREAST CANCER
     Dosage: 1100 MILLIGRAM, Q2WK
     Dates: start: 202012, end: 20210102

REACTIONS (5)
  - Pallor [Unknown]
  - Peripheral swelling [Unknown]
  - Acanthosis [Unknown]
  - Rash macular [Unknown]
  - Oedema peripheral [Not Recovered/Not Resolved]

NARRATIVE: CASE EVENT DATE: 202101
